FAERS Safety Report 6559555-3 (Version None)
Quarter: 2010Q1

REPORT INFORMATION
  Report Type: 
  Country: None (occurrence: None)
  Receive Date: 20100129
  Receipt Date: 20090902
  Transmission Date: 20100710
  Serious: No
  Sender: FDA-Public Use
  Company Number: US-ABBOTT-09P-163-0595330-00

PATIENT
  Sex: Female
  Weight: 95.34 kg

DRUGS (4)
  1. HUMIRA [Suspect]
     Indication: PSORIASIS
     Dates: start: 20090701
  2. LEXAPRO [Concomitant]
     Indication: POSTPARTUM DEPRESSION
  3. LOESTRIN 24 FE [Concomitant]
     Indication: CONTRACEPTION
  4. ATENOLOL [Concomitant]
     Indication: MIGRAINE

REACTIONS (4)
  - DRUG DOSE OMISSION [None]
  - INJECTION SITE ERYTHEMA [None]
  - INJECTION SITE PAIN [None]
  - INJECTION SITE PRURITUS [None]
